FAERS Safety Report 9878304 (Version 2)
Quarter: 2014Q1

REPORT INFORMATION
  Report Type: Spontaneous
  Country: None (occurrence: US)
  Receive Date: 20140206
  Receipt Date: 20140206
  Transmission Date: 20141002
  Serious: No
  Sender: FDA-Public Use
  Company Number: US-ALLERGAN-1310773US

PATIENT
  Age: 19 Year
  Sex: Female

DRUGS (3)
  1. BOTOX [Suspect]
     Indication: HYPERHIDROSIS
     Dosage: 100 UNITS, SINGLE
     Route: 030
     Dates: start: 20130718, end: 20130718
  2. ZOLOFT [Concomitant]
     Indication: DEPRESSION
  3. MEDICATIONS FOR OCD NOS [Concomitant]
     Indication: OBSESSIVE-COMPULSIVE DISORDER

REACTIONS (2)
  - Swollen tongue [Recovering/Resolving]
  - Sensory disturbance [Recovering/Resolving]
